FAERS Safety Report 6402902-3 (Version None)
Quarter: 2009Q4

REPORT INFORMATION
  Report Type: 
  Country: None (occurrence: None)
  Receive Date: 20091014
  Receipt Date: 20091014
  Transmission Date: 20100525
  Serious: Yes (Hospitalization)
  Sender: FDA-Public Use
  Company Number: None

PATIENT
  Sex: Male
  Weight: 109.7 kg

DRUGS (1)
  1. TEMOZOLOMIDE [Suspect]
     Indication: ACUTE MYELOID LEUKAEMIA

REACTIONS (12)
  - CHILLS [None]
  - DRY SKIN [None]
  - FEBRILE NEUTROPENIA [None]
  - HYPOPHAGIA [None]
  - NIGHT SWEATS [None]
  - ORAL CANDIDIASIS [None]
  - PYREXIA [None]
  - SKIN WARM [None]
  - TONGUE DISORDER [None]
  - TONGUE ULCERATION [None]
  - URINE OUTPUT DECREASED [None]
  - WEIGHT DECREASED [None]
